FAERS Safety Report 17707791 (Version 2)
Quarter: 2020Q2

REPORT INFORMATION
  Report Type: Spontaneous
  Country: CH (occurrence: CH)
  Receive Date: 20200424
  Receipt Date: 20200429
  Transmission Date: 20200714
  Serious: Yes (Death, Other)
  Sender: FDA-Public Use
  Company Number: CH-GILEAD-2020-0461181

PATIENT
  Age: 84 Year
  Sex: Male
  Weight: 74.2 kg

DRUGS (9)
  1. VEMLIDY [Concomitant]
     Active Substance: TENOFOVIR ALAFENAMIDE FUMARATE
  2. ASPIRIN CARDIO [Concomitant]
     Active Substance: ASPIRIN
  3. CANDESARTAN. [Concomitant]
     Active Substance: CANDESARTAN
  4. ZYDELIG [Suspect]
     Active Substance: IDELALISIB
     Dosage: 100 MG
     Route: 065
     Dates: start: 201911
  5. PANTOZOLE [Concomitant]
     Active Substance: PANTOPRAZOLE SODIUM
  6. NOVALGIN (METAMIZOLE SODIUM) [Concomitant]
     Active Substance: METAMIZOLE SODIUM
  7. ZYDELIG [Suspect]
     Active Substance: IDELALISIB
     Indication: PRODUCT USED FOR UNKNOWN INDICATION
     Dosage: 100 MG
     Route: 048
     Dates: start: 20190314
  8. MAGNESIUM CARBONATE [Concomitant]
     Active Substance: MAGNESIUM CARBONATE
  9. FOLIC ACID. [Concomitant]
     Active Substance: FOLIC ACID

REACTIONS (1)
  - Sudden death [Fatal]

NARRATIVE: CASE EVENT DATE: 20200408
